FAERS Safety Report 11340218 (Version 1)
Quarter: 2015Q3

REPORT INFORMATION
  Report Type: Spontaneous
  Country: US (occurrence: US)
  Receive Date: 20150805
  Receipt Date: 20150805
  Transmission Date: 20151125
  Serious: No
  Sender: FDA-Public Use
  Company Number: US-ASTRAZENECA-2015SE72742

PATIENT
  Sex: Male
  Weight: 174.6 kg

DRUGS (1)
  1. BYDUREON [Suspect]
     Active Substance: EXENATIDE
     Indication: TYPE 2 DIABETES MELLITUS
     Route: 058

REACTIONS (5)
  - Nodule [Not Recovered/Not Resolved]
  - Urticaria [Recovered/Resolved]
  - Glossitis [Recovered/Resolved]
  - Dermatitis [Recovered/Resolved]
  - Pruritus [Unknown]
